FAERS Safety Report 6741279-0 (Version None)
Quarter: 2010Q2

REPORT INFORMATION
  Report Type: 
  Country: None (occurrence: None)
  Receive Date: 20100526
  Receipt Date: 20100521
  Transmission Date: 20101027
  Serious: Yes (Hospitalization)
  Sender: FDA-Public Use
  Company Number: US-B.I. PHARMACEUTICALS,INC./RIDGEFIELD-2010-BP-05223BP

PATIENT
  Sex: Female

DRUGS (8)
  1. SPIRIVA [Suspect]
     Indication: ASTHMA
     Dosage: 18 MCG
     Route: 055
     Dates: start: 20080101, end: 20090101
  2. SPIRIVA [Suspect]
     Dosage: 18 MCG
     Route: 055
     Dates: start: 20091001
  3. ADVAIR DISKUS 100/50 [Concomitant]
     Indication: ASTHMA
  4. ALLEGRA [Concomitant]
     Indication: ASTHMA
  5. AXID [Concomitant]
     Indication: GASTROOESOPHAGEAL REFLUX DISEASE
  6. COUMADIN [Concomitant]
     Indication: MITRAL VALVE PROLAPSE
  7. LANOXIN [Concomitant]
     Indication: MITRAL VALVE PROLAPSE
  8. TIAZAC [Concomitant]
     Indication: MITRAL VALVE PROLAPSE

REACTIONS (5)
  - ASTHMA [None]
  - BACK PAIN [None]
  - CARDIAC FAILURE CONGESTIVE [None]
  - CATARACT [None]
  - PNEUMONIA [None]
